FAERS Safety Report 10812551 (Version 4)
Quarter: 2015Q2

REPORT INFORMATION
  Report Type: Report from Study
  Country: UY (occurrence: UY)
  Receive Date: 20150218
  Receipt Date: 20150414
  Transmission Date: 20150821
  Serious: Yes (Hospitalization, Other)
  Sender: FDA-Public Use
  Company Number: UY-ROCHE-1538668

PATIENT
  Sex: Female

DRUGS (3)
  1. XELODA [Suspect]
     Active Substance: CAPECITABINE
     Indication: COLON CANCER METASTATIC
     Route: 065
     Dates: start: 201211, end: 20130716
  2. OXALIPLATIN. [Suspect]
     Active Substance: OXALIPLATIN
     Indication: COLON CANCER METASTATIC
     Route: 065
     Dates: start: 201211, end: 20130716
  3. AVASTIN [Suspect]
     Active Substance: BEVACIZUMAB
     Indication: COLON CANCER METASTATIC
     Dosage: TREATMENT DISCONTINUED
     Route: 042
     Dates: start: 201211, end: 201501

REACTIONS (10)
  - Dyspnoea [Unknown]
  - Pain [Unknown]
  - Metastases to peritoneum [Unknown]
  - Memory impairment [Unknown]
  - Gingival bleeding [Recovered/Resolved]
  - Ascites [Unknown]
  - Nail disorder [Unknown]
  - Fluid retention [Unknown]
  - Speech disorder [Unknown]
  - Paraesthesia [Unknown]
